FAERS Safety Report 22713499 (Version 3)
Quarter: 2023Q4

REPORT INFORMATION
  Report Type: Spontaneous
  Country: US (occurrence: None)
  Receive Date: 20230717
  Receipt Date: 20231019
  Transmission Date: 20240110
  Serious: No
  Sender: FDA-Public Use
  Company Number: 2023A145134

PATIENT
  Age: 27375 Day
  Sex: Female

DRUGS (2)
  1. IMJUDO [Suspect]
     Active Substance: TREMELIMUMAB\TREMELIMUMAB-ACTL
     Indication: Hepatic cancer stage IV
     Dosage: ONCE/SINGLE ADMINISTRATION
     Route: 041
     Dates: start: 20230615
  2. IMFINZI [Concomitant]
     Active Substance: DURVALUMAB
     Indication: Hepatic cancer stage IV
     Route: 042
     Dates: start: 20230622

REACTIONS (3)
  - Headache [Recovered/Resolved]
  - Asthenia [Recovered/Resolved]
  - Fatigue [Recovered/Resolved]

NARRATIVE: CASE EVENT DATE: 20230615
